FAERS Safety Report 12411977 (Version 1)
Quarter: 2016Q2

REPORT INFORMATION
  Report Type: Spontaneous
  Country: US (occurrence: None)
  Receive Date: 20160526
  Receipt Date: 20160526
  Transmission Date: 20160815
  Serious: Yes (Other)
  Sender: FDA-Public Use
  Company Number: None

PATIENT
  Age: 8 Year
  Sex: Male
  Weight: 26.8 kg

DRUGS (2)
  1. CARNITOR SF (GENERIC) 100MG/ML [Suspect]
     Active Substance: LEVOCARNITINE
     Indication: IDIOPATHIC GENERALISED EPILEPSY
     Route: 048
  2. KEPPRA (GENERIC) 100MG/ML [Suspect]
     Active Substance: LEVETIRACETAM
     Indication: IDIOPATHIC GENERALISED EPILEPSY
     Route: 048

REACTIONS (1)
  - Product substitution issue [None]
